FAERS Safety Report 18491910 (Version 1)
Quarter: 2020Q4

REPORT INFORMATION
  Report Type: Spontaneous
  Country: FR (occurrence: FR)
  Receive Date: 20201111
  Receipt Date: 20201111
  Transmission Date: 20210114
  Serious: Yes (Hospitalization)
  Sender: FDA-Public Use
  Company Number: FR-MYLANLABS-2020M1092759

PATIENT
  Age: 30 Year
  Sex: Female
  Weight: 134 kg

DRUGS (1)
  1. BUPIVACAINE MYLAN [Suspect]
     Active Substance: BUPIVACAINE
     Indication: SPINAL ANAESTHESIA
     Dosage: UNK UNK, TOTAL
     Route: 024
     Dates: start: 20200930, end: 20200930

REACTIONS (2)
  - Drug ineffective [Recovered/Resolved]
  - Anaesthetic complication [Recovered/Resolved]

NARRATIVE: CASE EVENT DATE: 20200930
